FAERS Safety Report 12276253 (Version 1)
Quarter: 2016Q2

REPORT INFORMATION
  Report Type: Report from Study
  Country: EC (occurrence: EC)
  Receive Date: 20160418
  Receipt Date: 20160418
  Transmission Date: 20160815
  Serious: Yes (Hospitalization)
  Sender: FDA-Public Use
  Company Number: EC-SA-2016SA072868

PATIENT
  Age: 6 Year
  Sex: Female
  Weight: 17.5 kg

DRUGS (1)
  1. CEREZYME [Suspect]
     Active Substance: IMIGLUCERASE
     Indication: GAUCHER^S DISEASE
     Route: 041
     Dates: start: 201110

REACTIONS (4)
  - Diarrhoea [Not Recovered/Not Resolved]
  - Productive cough [Not Recovered/Not Resolved]
  - Pneumonia [Not Recovered/Not Resolved]
  - Pyrexia [Not Recovered/Not Resolved]

NARRATIVE: CASE EVENT DATE: 20160407
